FAERS Safety Report 21131022 (Version 1)
Quarter: 2022Q3

REPORT INFORMATION
  Report Type: Spontaneous
  Country: US (occurrence: None)
  Receive Date: 20220725
  Receipt Date: 20220725
  Transmission Date: 20221027
  Serious: Yes (Other)
  Sender: FDA-Public Use
  Company Number: None

PATIENT
  Age: 38 Year
  Sex: Female
  Weight: 74.83 kg

DRUGS (1)
  1. BEBTELOVIMAB [Suspect]
     Active Substance: BEBTELOVIMAB
     Indication: COVID-19
     Dosage: OTHER FREQUENCY : ONE;?
     Route: 040
     Dates: start: 20220722, end: 20220722

REACTIONS (3)
  - Nausea [None]
  - Vomiting [None]
  - Chest pain [None]

NARRATIVE: CASE EVENT DATE: 20220722
